FAERS Safety Report 8792773 (Version 1)
Quarter: 2012Q4

REPORT INFORMATION
  Report Type: 
  Country: US (occurrence: US)
  Receive Date: 20120918
  Receipt Date: 20120918
  Transmission Date: 20130627
  Serious: Yes (Hospitalization)
  Sender: FDA-Public Use
  Company Number: US-VERTEX PHARMACEUTICAL INC.-2012-021168

PATIENT
  Age: 34 Year
  Sex: Female
  Weight: 67 kg

DRUGS (3)
  1. VX-950 [Suspect]
     Indication: HEPATITIS C
     Dosage: 750 mg, UNK
     Route: 048
     Dates: start: 20120413, end: 20120513
  2. PEGASYS [Concomitant]
     Indication: HEPATITIS C
     Dosage: 180 ?g, UNK
     Route: 058
     Dates: start: 20120413
  3. RIBAVIRIN [Concomitant]
     Indication: HEPATITIS C
     Dosage: 400 mg, qam and qhs
     Route: 048
     Dates: start: 20120413

REACTIONS (3)
  - Abdominal pain [Not Recovered/Not Resolved]
  - Fatigue [Unknown]
  - Nausea [Unknown]
